FAERS Safety Report 24991946 (Version 3)
Quarter: 2025Q1

REPORT INFORMATION
  Report Type: Spontaneous
  Country: AT (occurrence: AT)
  Receive Date: 20250220
  Receipt Date: 20250318
  Transmission Date: 20250409
  Serious: Yes (Other)
  Sender: AMERICAN REGENT
  Company Number: AT-AMERICAN REGENT INC-2025000810

PATIENT
  Sex: Female

DRUGS (1)
  1. FERINJECT [Suspect]
     Active Substance: FERRIC CARBOXYMALTOSE
     Indication: Product used for unknown indication
     Route: 065

REACTIONS (5)
  - Circulatory collapse [Unknown]
  - Fatigue [Unknown]
  - Drug intolerance [Unknown]
  - Nausea [Unknown]
  - Pyrexia [Unknown]
